FAERS Safety Report 4644649-X (Version None)
Quarter: 2005Q2

REPORT INFORMATION
  Report Type: 
  Country: None (occurrence: None)
  Receive Date: 20050422
  Receipt Date: 20050411
  Transmission Date: 20051028
  Serious: Yes (Hospitalization, Other)
  Sender: FDA-Public Use
  Company Number: 17751

PATIENT
  Age: 61 Year
  Sex: Female
  Weight: 76.6579 kg

DRUGS (1)
  1. LEUCOVORIN CALCIUM [Suspect]
     Dosage: SEE IMAGE

REACTIONS (4)
  - CATHETER RELATED COMPLICATION [None]
  - JUGULAR VEIN THROMBOSIS [None]
  - PYREXIA [None]
  - VENOUS THROMBOSIS LIMB [None]
